FAERS Safety Report 7939739-X (Version None)
Quarter: 2011Q4

REPORT INFORMATION
  Report Type: 
  Country: None (occurrence: None)
  Receive Date: 20111125
  Receipt Date: 20111118
  Transmission Date: 20120403
  Serious: Yes (Death, Hospitalization, Other)
  Sender: FDA-Public Use
  Company Number: PHHY2011CN101426

PATIENT
  Age: 25 Year
  Sex: Male

DRUGS (7)
  1. CORTICOSTEROIDS [Concomitant]
  2. ETOPOSIDE [Concomitant]
  3. CELLCEPT [Concomitant]
  4. IMMUNE GLOBULIN NOS [Concomitant]
     Route: 042
  5. DEXAMETHASONE [Concomitant]
  6. CYCLOSPORINE [Suspect]
     Indication: HISTIOCYTOSIS HAEMATOPHAGIC
  7. SOLU-MEDROL [Concomitant]

REACTIONS (7)
  - MYOCARDIAL INFARCTION [None]
  - ARRHYTHMIA [None]
  - CARDIAC ARREST [None]
  - DISEASE PROGRESSION [None]
  - CARDITIS [None]
  - CARDIOGENIC SHOCK [None]
  - CARDIOMYOPATHY [None]
